FAERS Safety Report 15767183 (Version 1)
Quarter: 2018Q4

REPORT INFORMATION
  Report Type: Spontaneous
  Country: US (occurrence: US)
  Receive Date: 20181227
  Receipt Date: 20181227
  Transmission Date: 20190205
  Serious: Yes (Other)
  Sender: FDA-Public Use
  Company Number: US-BAYER-2018-242292

PATIENT
  Age: 68 Year
  Sex: Female

DRUGS (2)
  1. NAPROXEN SODIUM HIGH DOSE (} 220 MG) [Interacting]
     Active Substance: NAPROXEN SODIUM
     Dosage: UNK
  2. ACETYLSALICYLIC ACID (} 100 MG) [Suspect]
     Active Substance: ASPIRIN
     Dosage: UNK

REACTIONS (4)
  - Vitreous haemorrhage [Recovered/Resolved with Sequelae]
  - Potentiating drug interaction [None]
  - Extra dose administered [None]
  - Retinal haemorrhage [Recovered/Resolved with Sequelae]
